FAERS Safety Report 8413125-0 (Version None)
Quarter: 2012Q2

REPORT INFORMATION
  Report Type: 
  Country: None (occurrence: None)
  Receive Date: 20120323
  Receipt Date: 20110415
  Transmission Date: 20120825
  Serious: Yes (Hospitalization, Other)
  Sender: FDA-Public Use
  Company Number: 163-21880-11022574

PATIENT
  Age: 62 Year
  Sex: Female
  Weight: 62.1 kg

DRUGS (7)
  1. CRESTOR (ROSUVASTATIN) (UNKNOWN) [Concomitant]
  2. SODIUM BICARBONATE (SODIUM BICARBONATE) (UNKNOWN) [Concomitant]
  3. AMIDIPINE (AMLODIPINE BESILATE) (UNKNOWN) [Concomitant]
  4. REVLIMID [Suspect]
     Indication: MULTIPLE MYELOMA
     Dosage: 25 MG, DAILY FOR 21 DAYS, PO 25 MG, DAILY FOR 21 DAYS, PO
     Route: 048
     Dates: start: 20110401
  5. REVLIMID [Suspect]
     Indication: MULTIPLE MYELOMA
     Dosage: 25 MG, DAILY FOR 21 DAYS, PO 25 MG, DAILY FOR 21 DAYS, PO
     Route: 048
     Dates: start: 20100524, end: 20110203
  6. DEXAMETHASONE [Concomitant]
  7. NORVASC [Concomitant]

REACTIONS (9)
  - DEHYDRATION [None]
  - ASTHENIA [None]
  - INFLUENZA [None]
  - FATIGUE [None]
  - URINARY TRACT INFECTION [None]
  - PNEUMONIA [None]
  - ECCHYMOSIS [None]
  - SINUSITIS [None]
  - RENAL FAILURE ACUTE [None]
